FAERS Safety Report 9373585 (Version 1)
Quarter: 2013Q2

REPORT INFORMATION
  Report Type: Spontaneous
  Country: BR (occurrence: BR)
  Receive Date: 20130627
  Receipt Date: 20130627
  Transmission Date: 20140414
  Serious: Yes (Other)
  Sender: FDA-Public Use
  Company Number: PHHY2013BR064686

PATIENT
  Age: 61 Year
  Sex: Male

DRUGS (3)
  1. APRESOLIN [Suspect]
     Indication: HYPERTENSION
     Dosage: 2 DF(25MG), A DAY
  2. APRESOLIN [Suspect]
     Dosage: 0.5 DF(50MG), BID(HALF A TABLET IN THE MORNING AND HALF A TABLET AT NIGHT)
  3. ATENOLOL [Suspect]
     Dosage: UNK UKN, UNK
     Dates: start: 2009

REACTIONS (4)
  - Type 2 diabetes mellitus [Unknown]
  - Stress [Unknown]
  - Depression [Unknown]
  - Wrong technique in drug usage process [Unknown]
